FAERS Safety Report 8987610 (Version 2)
Quarter: 2013Q1

REPORT INFORMATION
  Report Type: Other
  Country: DE (occurrence: DE)
  Receive Date: 20121227
  Receipt Date: 20130122
  Transmission Date: 20140127
  Serious: Yes (Other)
  Sender: FDA-Public Use
  Company Number: DE-NICOBRDEVP-2012-22429

PATIENT
  Age: 51 Year
  Sex: Female

DRUGS (1)
  1. CARVEDILOL (UNKNOWN) [Suspect]
     Indication: HYPERTENSION
     Dosage: 12.5 MG, DAILY
     Route: 048
     Dates: start: 20120521

REACTIONS (1)
  - Diabetes mellitus [Unknown]
